FAERS Safety Report 19021018 (Version 2)
Quarter: 2021Q1

REPORT INFORMATION
  Report Type: Report from Study
  Country: AU (occurrence: AU)
  Receive Date: 20210317
  Receipt Date: 20210331
  Transmission Date: 20210420
  Serious: Yes (Other)
  Sender: FDA-Public Use
  Company Number: AU-MYLANLABS-2021M1015912

PATIENT
  Sex: Male

DRUGS (2)
  1. ITRACONAZOLE. [Suspect]
     Active Substance: ITRACONAZOLE
     Indication: PROSTATE CANCER
     Dosage: 150 MILLIGRAM, BID
     Route: 065
  2. HYDROXYCHLOROQUINE [Suspect]
     Active Substance: HYDROXYCHLOROQUINE
     Indication: PROSTATE CANCER
     Dosage: 600 MILLIGRAM, BID; DOSE ESCALATION IN A ROLLING 6 DESIGN
     Route: 065

REACTIONS (2)
  - Diarrhoea [Unknown]
  - Off label use [Unknown]
